FAERS Safety Report 4541159-5 (Version None)
Quarter: 2004Q4

REPORT INFORMATION
  Report Type: 
  Country: None (occurrence: None)
  Receive Date: 20041227
  Receipt Date: 20041214
  Transmission Date: 20050328
  Serious: Yes (Other)
  Sender: FDA-Public Use
  Company Number: HQWYE110620DEC04

PATIENT
  Age: 53 Year
  Sex: Male

DRUGS (1)
  1. ADVIL [Suspect]
     Indication: ARTHRITIS
     Dosage: 4 TO 6, 600 MG TABS DAILY, IN TWO TO THREE DIVIDED DOSES, TOTAL 2400 TO 3600MG DAILY

REACTIONS (6)
  - DRUG ABUSER [None]
  - INTENTIONAL OVERDOSE [None]
  - RENAL COLIC [None]
  - RENAL FAILURE [None]
  - RENAL PAPILLARY NECROSIS [None]
  - URINARY BLADDER ADENOMA [None]
